FAERS Safety Report 10918190 (Version 1)
Quarter: 2015Q1

REPORT INFORMATION
  Report Type: Spontaneous
  Country: US (occurrence: US)
  Receive Date: 20150316
  Receipt Date: 20150316
  Transmission Date: 20150721
  Serious: No
  Sender: FDA-Public Use
  Company Number: US-GALDERMA-US14004258

PATIENT
  Age: 36 Year
  Sex: Female

DRUGS (6)
  1. UNKNOWN CLEANSER FOR SENSITIVE SKIN WITH CUCUMBER [Concomitant]
     Indication: THERAPEUTIC SKIN CARE TOPICAL
     Route: 061
  2. TRI-LUMA [Suspect]
     Active Substance: FLUOCINOLONE ACETONIDE\HYDROQUINONE\TRETINOIN
     Indication: CHLOASMA
     Route: 061
     Dates: start: 201409
  3. TRI-LUMA [Suspect]
     Active Substance: FLUOCINOLONE ACETONIDE\HYDROQUINONE\TRETINOIN
     Indication: CHLOASMA
     Route: 061
     Dates: start: 20140921
  4. LAROCHE POSEY FOR SENSITIVE SKIN [Concomitant]
     Indication: THERAPEUTIC SKIN CARE TOPICAL
     Route: 061
  5. ELTA SUNSSCREEN [Concomitant]
     Indication: PROPHYLAXIS AGAINST SOLAR RADIATION
     Route: 061
  6. UNKNOWN MOISTURIZER [Concomitant]
     Indication: DRY SKIN PROPHYLAXIS
     Route: 061

REACTIONS (2)
  - Skin exfoliation [Not Recovered/Not Resolved]
  - Skin irritation [Not Recovered/Not Resolved]

NARRATIVE: CASE EVENT DATE: 201409
